FAERS Safety Report 9091278 (Version 2)
Quarter: 2013Q1

REPORT INFORMATION
  Report Type: Spontaneous
  Country: US (occurrence: US)
  Receive Date: 20130131
  Receipt Date: 20130219
  Transmission Date: 20140127
  Serious: Yes (Other)
  Sender: FDA-Public Use
  Company Number: US-PFIZER INC-2013013727

PATIENT
  Age: 61 Year
  Sex: Female
  Weight: 64.85 kg

DRUGS (6)
  1. FLECTOR [Suspect]
     Indication: PAIN
     Dosage: UNK
  2. PERCOCET [Concomitant]
     Dosage: UNK
  3. LORAZEPAM [Concomitant]
     Dosage: UNK
  4. SENNA-GEN [Concomitant]
     Dosage: UNK
  5. DICYCLOMINE [Concomitant]
     Dosage: UNK
  6. CELEBREX [Concomitant]
     Dosage: UNK, 1X/DAY

REACTIONS (3)
  - Spinal disorder [Unknown]
  - Intervertebral disc displacement [Unknown]
  - Body height decreased [Unknown]
